FAERS Safety Report 18089093 (Version 1)
Quarter: 2020Q3

REPORT INFORMATION
  Report Type: Spontaneous
  Country: US (occurrence: US)
  Receive Date: 20200729
  Receipt Date: 20200729
  Transmission Date: 20201103
  Serious: No
  Sender: FDA-Public Use
  Company Number: US-TEVA-2020-US-1806832

PATIENT
  Sex: Female

DRUGS (11)
  1. CALCIUM [Concomitant]
     Active Substance: CALCIUM
     Route: 065
  2. GABAPENTIN. [Concomitant]
     Active Substance: GABAPENTIN
     Route: 065
  3. PRILOSEC [Concomitant]
     Active Substance: OMEPRAZOLE MAGNESIUM
     Route: 065
  4. TIZANIDINE. [Concomitant]
     Active Substance: TIZANIDINE
     Route: 065
  5. MELOXICAM. [Concomitant]
     Active Substance: MELOXICAM
     Route: 065
  6. COPAXONE [Suspect]
     Active Substance: GLATIRAMER ACETATE
     Indication: MULTIPLE SCLEROSIS
     Route: 058
     Dates: start: 20190411
  7. AMANTADINE. [Concomitant]
     Active Substance: AMANTADINE HYDROCHLORIDE
     Route: 065
  8. NORCO [Concomitant]
     Active Substance: ACETAMINOPHEN\HYDROCODONE BITARTRATE
     Route: 065
  9. VITAMIN B12 [Concomitant]
     Active Substance: CYANOCOBALAMIN
     Route: 065
  10. SIMVASTATIN. [Concomitant]
     Active Substance: SIMVASTATIN
     Route: 065
  11. ZOLOFT [Concomitant]
     Active Substance: SERTRALINE HYDROCHLORIDE
     Route: 065

REACTIONS (4)
  - Balance disorder [Not Recovered/Not Resolved]
  - Pain [Not Recovered/Not Resolved]
  - Injection site reaction [Not Recovered/Not Resolved]
  - Paraesthesia [Not Recovered/Not Resolved]
